FAERS Safety Report 4439510-X (Version None)
Quarter: 2004Q3

REPORT INFORMATION
  Report Type: 
  Country: None (occurrence: None)
  Receive Date: 20040901
  Receipt Date: 20040901
  Transmission Date: 20050211
  Serious: Yes (Hospitalization)
  Sender: FDA-Public Use
  Company Number: None

PATIENT
  Sex: Male

DRUGS (2)
  1. VASOTEC [Suspect]
     Indication: HYPERTENSION
     Dosage: PO [PRIOR TO ADMISSION[
     Route: 048
  2. DYAZIDE [Suspect]
     Indication: HYPERTENSION
     Dosage: PO [PRIOR TO ADMISSION]
     Route: 048

REACTIONS (2)
  - CHEST PAIN [None]
  - PALPITATIONS [None]
